FAERS Safety Report 13155857 (Version 1)
Quarter: 2017Q1

REPORT INFORMATION
  Report Type: Spontaneous
  Country: US (occurrence: US)
  Receive Date: 20170126
  Receipt Date: 20170126
  Transmission Date: 20170428
  Serious: No
  Sender: FDA-Public Use
  Company Number: US-ROCHE-680952

PATIENT
  Sex: Female
  Weight: 47.2 kg

DRUGS (1)
  1. VALIUM [Suspect]
     Active Substance: DIAZEPAM
     Indication: BACK PAIN
     Route: 048

REACTIONS (8)
  - Joint range of motion decreased [Unknown]
  - Constipation [Unknown]
  - Pain [Unknown]
  - Weight decreased [Unknown]
  - Peripheral swelling [Unknown]
  - Abdominal distension [Unknown]
  - Arthralgia [Unknown]
  - Pain in extremity [Unknown]
